FAERS Safety Report 5876101-8 (Version None)
Quarter: 2008Q3

REPORT INFORMATION
  Report Type: 
  Country: None (occurrence: None)
  Receive Date: 20080910
  Receipt Date: 20080903
  Transmission Date: 20090109
  Serious: Yes (Hospitalization, Other)
  Sender: FDA-Public Use
  Company Number: JP-AVENTIS-200812805JP

PATIENT
  Age: 56 Year
  Sex: Female

DRUGS (3)
  1. INSULIN GLARGINE [Suspect]
     Route: 058
  2. INSULIN GLARGINE [Suspect]
     Route: 058
  3. QUICK ACTING INSULIN [Concomitant]
     Dosage: FREQUENCY: BEFORE MEALS

REACTIONS (2)
  - DIABETIC KETOACIDOSIS [None]
  - HYPOGLYCAEMIA [None]
